FAERS Safety Report 4720728-3 (Version None)
Quarter: 2005Q3

REPORT INFORMATION
  Report Type: 
  Country: None (occurrence: None)
  Receive Date: 20050721
  Receipt Date: 20050601
  Transmission Date: 20060218
  Serious: Yes (Other)
  Sender: FDA-Public Use
  Company Number: JP-GLAXOSMITHKLINE-B0383300A

PATIENT
  Age: 75 Year
  Sex: Female

DRUGS (8)
  1. PAXIL [Suspect]
     Indication: SOMATOFORM DISORDER
     Route: 048
     Dates: start: 20031020
  2. LEXOTAN [Concomitant]
     Route: 048
  3. NORVASC [Concomitant]
     Route: 048
  4. DORAL [Concomitant]
     Route: 048
  5. LUDIOMIL [Concomitant]
     Route: 048
  6. AMOBAN [Concomitant]
     Route: 048
  7. KAMAG G [Concomitant]
     Route: 048
  8. RACBON [Concomitant]
     Route: 048

REACTIONS (3)
  - CORNEAL REFLEX DECREASED [None]
  - DYSKINESIA [None]
  - FALL [None]
